FAERS Safety Report 7098735-8 (Version None)
Quarter: 2010Q4

REPORT INFORMATION
  Report Type: 
  Country: None (occurrence: None)
  Receive Date: 20101112
  Receipt Date: 20080428
  Transmission Date: 20110411
  Serious: No
  Sender: FDA-Public Use
  Company Number: US-KINGPHARMUSA00001-K200800497

PATIENT
  Sex: Female

DRUGS (2)
  1. SKELAXIN [Suspect]
     Indication: PAIN
     Dosage: 800 MG, QD
     Route: 048
     Dates: start: 20080401, end: 20080401
  2. OXYCONTIN [Concomitant]
     Indication: PAIN
     Route: 048

REACTIONS (2)
  - FEAR [None]
  - HEART RATE INCREASED [None]
